FAERS Safety Report 6710764-X (Version None)
Quarter: 2010Q2

REPORT INFORMATION
  Report Type: 
  Country: None (occurrence: None)
  Receive Date: 20100504
  Receipt Date: 20100504
  Transmission Date: 20101027
  Serious: Yes (Other)
  Sender: FDA-Public Use
  Company Number: None

PATIENT
  Age: 54 Year
  Sex: Male
  Weight: 147.419 kg

DRUGS (1)
  1. J + J BABY OIL W/ ALOE + VITAMIN E [Suspect]
     Indication: THERAPEUTIC SKIN CARE TOPICAL
     Dosage: TOPICAL
     Route: 061
     Dates: start: 20100301

REACTIONS (3)
  - ACCIDENTAL EXPOSURE [None]
  - HEADACHE [None]
  - VISION BLURRED [None]
